FAERS Safety Report 5533018-6 (Version None)
Quarter: 2007Q4

REPORT INFORMATION
  Report Type: 
  Country: None (occurrence: None)
  Receive Date: 20071204
  Receipt Date: 20071120
  Transmission Date: 20080405
  Serious: Yes (Hospitalization)
  Sender: FDA-Public Use
  Company Number: GB-RANBAXY-2007RR-11608

PATIENT

DRUGS (3)
  1. TERBINAFINE HCL [Suspect]
     Indication: ONYCHOMYCOSIS
     Dosage: 250 MG, UNK
     Route: 048
     Dates: start: 20070524
  2. AMOXICILLIN + CLAVULANATE POTASSIUM [Concomitant]
     Indication: LOWER RESPIRATORY TRACT INFECTION
     Dosage: UNK
     Route: 048
     Dates: start: 20070927, end: 20071005
  3. SALBUTAMOL TABLETS BP 2MG [Concomitant]
     Indication: LOWER RESPIRATORY TRACT INFECTION
     Dosage: 100 UG, UNK
     Route: 055
     Dates: start: 20070927

REACTIONS (1)
  - CONGESTIVE CARDIOMYOPATHY [None]
